FAERS Safety Report 4389825-0 (Version None)
Quarter: 2004Q2

REPORT INFORMATION
  Report Type: 
  Country: None (occurrence: None)
  Receive Date: 20040630
  Receipt Date: 20040622
  Transmission Date: 20050107
  Serious: Yes (Death)
  Sender: FDA-Public Use
  Company Number: 2004-04-1183

PATIENT
  Age: 32 Year
  Sex: Female

DRUGS (6)
  1. TEMODAL [Suspect]
     Indication: GLIOBLASTOMA
     Dosage: 300 MG CYCLIC ORAL
     Route: 048
  2. VALPROIC ACID [Suspect]
     Dosage: 600 MG ORAL
     Route: 048
  3. DEXSAMETHASONE [Concomitant]
  4. NEXIUM [Concomitant]
  5. KYTRIL [Concomitant]
  6. GABAPENTIN [Concomitant]

REACTIONS (2)
  - PAIN [None]
  - THERAPEUTIC RESPONSE INCREASED [None]
